FAERS Safety Report 15349019 (Version 1)
Quarter: 2018Q3

REPORT INFORMATION
  Report Type: Not Available
  Country: US (occurrence: US)
  Receive Date: 20180904
  Receipt Date: 20180904
  Transmission Date: 20181010
  Serious: No
  Sender: FDA-Public Use
  Company Number: US-NEUROCRINE BIOSCIENCES INC.-2018NBI02489

PATIENT
  Sex: Male

DRUGS (4)
  1. INGREZZA [Suspect]
     Active Substance: VALBENAZINE
     Indication: TARDIVE DYSKINESIA
  2. GABAPENTIN. [Concomitant]
     Active Substance: GABAPENTIN
     Indication: MOOD ALTERED
  3. INGREZZA [Suspect]
     Active Substance: VALBENAZINE
  4. INGREZZA [Suspect]
     Active Substance: VALBENAZINE
     Dates: start: 20180717, end: 20180813

REACTIONS (2)
  - Dyskinesia [Recovered/Resolved]
  - Respiration abnormal [Recovered/Resolved]

NARRATIVE: CASE EVENT DATE: 2018
